FAERS Safety Report 25115224 (Version 1)
Quarter: 2025Q1

REPORT INFORMATION
  Report Type: Spontaneous
  Country: ES (occurrence: ES)
  Receive Date: 20250324
  Receipt Date: 20250324
  Transmission Date: 20250408
  Serious: Yes (Other)
  Sender: TAKEDA
  Company Number: ES-TAKEDA-2025TUS030418

PATIENT
  Age: 65 Year
  Sex: Male

DRUGS (7)
  1. FEBUXOSTAT [Suspect]
     Active Substance: FEBUXOSTAT
     Indication: Diabetes mellitus
     Dosage: 80 MILLIGRAM, QD
     Dates: start: 20250218
  2. OLMESARTAN MEDOXOMIL [Concomitant]
     Active Substance: OLMESARTAN MEDOXOMIL
     Indication: Essential hypertension
  3. OMEPRAZOLE [Concomitant]
     Active Substance: OMEPRAZOLE
     Indication: Diaphragmatic hernia
  4. SIMVASTATIN [Concomitant]
     Active Substance: SIMVASTATIN
     Indication: Type IIa hyperlipidaemia
  5. TORSEMIDE [Concomitant]
     Active Substance: TORSEMIDE
     Indication: Essential hypertension
  6. LAMISIL [Concomitant]
     Active Substance: TERBINAFINE HYDROCHLORIDE
     Indication: Dermatophytosis of nail
     Dosage: UNK, QD
     Route: 061
     Dates: start: 20250211
  7. CLOBEX [Concomitant]
     Active Substance: CLOBETASOL PROPIONATE
     Indication: Seborrhoeic dermatitis
     Dosage: 7.5 MILLILITER, QD
     Route: 061
     Dates: start: 20231220

REACTIONS (3)
  - Pollakiuria [Recovering/Resolving]
  - Loss of libido [Recovering/Resolving]
  - Product use in unapproved indication [Recovered/Resolved]

NARRATIVE: CASE EVENT DATE: 20250218
